FAERS Safety Report 4363842-7 (Version None)
Quarter: 2004Q2

REPORT INFORMATION
  Report Type: 
  Country: None (occurrence: None)
  Receive Date: 20040520
  Receipt Date: 20040520
  Transmission Date: 20050107
  Serious: Yes (Other)
  Sender: FDA-Public Use
  Company Number: None

PATIENT
  Age: 35 Year
  Sex: Male
  Weight: 74.8435 kg

DRUGS (2)
  1. ZOLOFT [Suspect]
     Indication: DEPRESSION
     Dosage: ZOLOFT 1 PER DAY
  2. SERZONE [Suspect]
     Indication: DEPRESSION
     Dosage: SERZONE 2 PER DAY

REACTIONS (6)
  - ABNORMAL BEHAVIOUR [None]
  - AGGRESSION [None]
  - ANGER [None]
  - FAMILY STRESS [None]
  - HOSTILITY [None]
  - PERSONALITY CHANGE [None]
